FAERS Safety Report 14712897 (Version 1)
Quarter: 2018Q1

REPORT INFORMATION
  Report Type: Spontaneous
  Country: US (occurrence: US)
  Receive Date: 20180330
  Receipt Date: 20180330
  Transmission Date: 20180509
  Serious: No
  Sender: FDA-Public Use
  Company Number: None

PATIENT
  Age: 66 Year
  Sex: Male

DRUGS (1)
  1. REPATHA [Suspect]
     Active Substance: EVOLOCUMAB
     Indication: RHEUMATOID ARTHRITIS
     Route: 058
     Dates: start: 20180318

REACTIONS (3)
  - Blood triglycerides increased [None]
  - Myocardial infarction [None]
  - Blood uric acid increased [None]

NARRATIVE: CASE EVENT DATE: 20180330
